FAERS Safety Report 4534892-2 (Version None)
Quarter: 2004Q4

REPORT INFORMATION
  Report Type: 
  Country: None (occurrence: None)
  Receive Date: 20041222
  Receipt Date: 20040628
  Transmission Date: 20050328
  Serious: No
  Sender: FDA-Public Use
  Company Number: US-BRISTOL-MYERS SQUIBB COMPANY-12626743

PATIENT
  Age: 79 Year
  Sex: Female
  Weight: 54 kg

DRUGS (7)
  1. PRAVACHOL [Suspect]
     Indication: BLOOD CHOLESTEROL INCREASED
     Route: 048
  2. LYSINE [Concomitant]
  3. ACYCLOVIR [Concomitant]
  4. GLUCOSAMINE [Concomitant]
  5. VITAMIN E [Concomitant]
  6. CALCIUM [Concomitant]
  7. LUTEIN [Concomitant]

REACTIONS (1)
  - DYSPEPSIA [None]
